FAERS Safety Report 4429563-7 (Version None)
Quarter: 2004Q3

REPORT INFORMATION
  Report Type: 
  Country: None (occurrence: None)
  Receive Date: 20040816
  Receipt Date: 20040805
  Transmission Date: 20050211
  Serious: Yes (Hospitalization)
  Sender: FDA-Public Use
  Company Number: STA-AE-04-MTX-336

PATIENT
  Age: 59 Year
  Sex: Female

DRUGS (7)
  1. RHEUMATREX [Suspect]
     Indication: RHEUMATOID ARTHRITIS
     Dosage: 6 MG 1X PER 1 WK, ORAL
     Route: 048
     Dates: end: 20040629
  2. INDOMETHACIN [Suspect]
     Indication: RHEUMATOID ARTHRITIS
     Dosage: 50 MG 1X PER 1 DAY, ORAL
     Route: 048
     Dates: end: 20040701
  3. PREDNISOLONE [Concomitant]
  4. SUCRALFATE [Concomitant]
  5. SLOW-FE (FERROUS SULFATE) [Concomitant]
  6. ALFAROL (ALFACALCIDOL) [Concomitant]
  7. URINORM (BENZBROMARONE) [Concomitant]

REACTIONS (3)
  - COUGH [None]
  - LUNG INFECTION [None]
  - PANCYTOPENIA [None]
